FAERS Safety Report 16028137 (Version 1)
Quarter: 2019Q1

REPORT INFORMATION
  Report Type: Report from Study
  Country: JP (occurrence: JP)
  Receive Date: 20190304
  Receipt Date: 20190304
  Transmission Date: 20190418
  Serious: Yes (Other)
  Sender: FDA-Public Use
  Company Number: JP-ROCHE-2268780

PATIENT
  Age: 76 Year
  Sex: Female

DRUGS (5)
  1. BEVACIZUMAB. [Suspect]
     Active Substance: BEVACIZUMAB
     Indication: OVARIAN CANCER
     Route: 042
  2. CARBOPLATIN. [Suspect]
     Active Substance: CARBOPLATIN
     Indication: OVARIAN CANCER
     Dosage: 6 MG/ML/MIN,
     Route: 042
  3. PACLITAXEL. [Suspect]
     Active Substance: PACLITAXEL
     Indication: OVARIAN CANCER
     Dosage: DAY 1
     Route: 042
  4. DAIKENCHUTO [Concomitant]
     Active Substance: HERBALS
  5. APIXABAN [Concomitant]
     Active Substance: APIXABAN

REACTIONS (9)
  - Peripheral motor neuropathy [Unknown]
  - Malaise [Unknown]
  - Peripheral sensory neuropathy [Unknown]
  - Neutropenia [Unknown]
  - Anaemia [Unknown]
  - Nausea [Unknown]
  - Alopecia [Unknown]
  - Proteinuria [Unknown]
  - Thrombocytopenia [Unknown]
